FAERS Safety Report 12080218 (Version 1)
Quarter: 2016Q1

REPORT INFORMATION
  Report Type: Spontaneous
  Country: US (occurrence: None)
  Receive Date: 20160212
  Receipt Date: 20160212
  Transmission Date: 20160526
  Serious: Yes (Hospitalization)
  Sender: FDA-Public Use
  Company Number: None

PATIENT
  Age: 55 Year
  Sex: Male
  Weight: 90.8 kg

DRUGS (1)
  1. NORMAL SALINE 0.9% BAXTER [Suspect]
     Active Substance: SODIUM CHLORIDE
     Indication: THERAPEUTIC PROCEDURE
     Dates: start: 20151201, end: 20151201

REACTIONS (1)
  - Bacteraemia [None]

NARRATIVE: CASE EVENT DATE: 20151204
